FAERS Safety Report 14854762 (Version 7)
Quarter: 2021Q4

REPORT INFORMATION
  Report Type: Report from Study
  Country: DE (occurrence: DE)
  Receive Date: 20180507
  Receipt Date: 20211228
  Transmission Date: 20220303
  Serious: Yes (Other)
  Sender: FDA-Public Use
  Company Number: DE-002147023-PHHY2018DE030312

PATIENT
  Age: 67 Year
  Sex: Female
  Weight: 88 kg

DRUGS (8)
  1. ANASTROZOLE [Suspect]
     Active Substance: ANASTROZOLE
     Indication: Breast cancer metastatic
     Dosage: 1 MILLIGRAM, QD
     Route: 048
     Dates: start: 20180118
  2. ANASTROZOLE [Suspect]
     Active Substance: ANASTROZOLE
     Dosage: 1 MILLIGRAM, QD
     Route: 048
     Dates: start: 20180115, end: 20191007
  3. KISQALI [Suspect]
     Active Substance: RIBOCICLIB
     Indication: Breast cancer metastatic
     Dosage: 200 MG, QD
     Route: 048
     Dates: start: 20180118, end: 20180208
  4. KISQALI [Suspect]
     Active Substance: RIBOCICLIB
     Dosage: 600 MG(200X3), QD SCHEMA 21 DAYS INTAKE, THAN 7 DAYS PAUSE
     Route: 048
     Dates: start: 20180115, end: 20180202
  5. KISQALI [Suspect]
     Active Substance: RIBOCICLIB
     Dosage: 600 MG(200X3), QD
     Route: 048
     Dates: start: 20180216, end: 20180228
  6. KISQALI [Suspect]
     Active Substance: RIBOCICLIB
     Dosage: 400 MG, QD, SCHEMA 21 DAYS INTAKE, THAN 7 DAYS PAUSE2-0-0
     Route: 048
     Dates: start: 20180301, end: 20180412
  7. KISQALI [Suspect]
     Active Substance: RIBOCICLIB
     Dosage: 400 MG, QD (200MG X 2)
     Route: 048
     Dates: start: 20180511
  8. KISQALI [Suspect]
     Active Substance: RIBOCICLIB
     Dosage: 200 MILLIGRAM, QD(400 MG, QD (200MG X 2)) (MORNING)
     Route: 048
     Dates: start: 20180510, end: 20191007

REACTIONS (5)
  - Neutropenia [Recovering/Resolving]
  - Leukopenia [Recovering/Resolving]
  - Hepatic lesion [Unknown]
  - Gamma-glutamyltransferase increased [Recovering/Resolving]
  - Haematotoxicity [Recovered/Resolved]

NARRATIVE: CASE EVENT DATE: 20180208
